FAERS Safety Report 9335502 (Version 1)
Quarter: 2013Q2

REPORT INFORMATION
  Report Type: Spontaneous
  Country: US (occurrence: US)
  Receive Date: 20130605
  Receipt Date: 20130605
  Transmission Date: 20140414
  Serious: No
  Sender: FDA-Public Use
  Company Number: US-PFIZER INC-2013166454

PATIENT
  Age: 73 Year
  Sex: Female
  Weight: 86.17 kg

DRUGS (4)
  1. CELEBREX [Suspect]
     Dosage: UNK
     Dates: end: 2011
  2. HYDROCHLOROTHIAZIDE/TRIAMTERENE [Concomitant]
     Indication: HYPERTENSION
     Dosage: UNK, 1X/DAY
  3. POTASSIUM [Concomitant]
     Dosage: 10 MEQ, 1X/DAY
  4. LISINOPRIL [Concomitant]
     Dosage: 20 MG, 1X/DAY

REACTIONS (3)
  - Malaise [Unknown]
  - Drug ineffective [Unknown]
  - Inappropriate schedule of drug administration [Unknown]
